FAERS Safety Report 4338663-1 (Version None)
Quarter: 2004Q2

REPORT INFORMATION
  Report Type: 
  Country: None (occurrence: None)
  Receive Date: 20040409
  Receipt Date: 20040402
  Transmission Date: 20050107
  Serious: Yes (Life-Threatening, Disabling, Other)
  Sender: FDA-Public Use
  Company Number: JP-SHR-04-020951

PATIENT
  Age: 58 Year
  Sex: Male
  Weight: 70 kg

DRUGS (7)
  1. FERIDEX I.V. [Suspect]
     Indication: NUCLEAR MAGNETIC RESONANCE IMAGING
     Dosage: 3.5 ML 1 DOSE, INTRAVENOUS
     Route: 042
     Dates: start: 20040125, end: 20040126
  2. INTRON A [Suspect]
     Dates: start: 20040126, end: 20040126
  3. REBETOL [Concomitant]
  4. URSO [Concomitant]
  5. LANSOPRAZOLE [Concomitant]
  6. SUCRALFATE [Concomitant]
  7. DEXTROSE INFUSION FLUID [Concomitant]

REACTIONS (11)
  - CHEST PAIN [None]
  - CHILLS [None]
  - CYANOSIS [None]
  - DEAFNESS UNILATERAL [None]
  - INFUSION RELATED REACTION [None]
  - INNER EAR DISORDER [None]
  - PYREXIA [None]
  - RESPIRATORY DISTRESS [None]
  - SHOCK [None]
  - STRESS SYMPTOMS [None]
  - SUDDEN HEARING LOSS [None]
